FAERS Safety Report 10081868 (Version 1)
Quarter: 2014Q2

REPORT INFORMATION
  Report Type: Spontaneous
  Country: US (occurrence: US)
  Receive Date: 20140416
  Receipt Date: 20140416
  Transmission Date: 20141212
  Serious: Yes (Other)
  Sender: FDA-Public Use
  Company Number: US-GLAXOSMITHKLINE-A1069590A

PATIENT
  Age: 50 Year
  Sex: Female

DRUGS (1)
  1. NICODERM CQ CLEAR 21MG [Suspect]
     Indication: SMOKING CESSATION THERAPY
     Route: 062
     Dates: start: 20140411, end: 20140412

REACTIONS (11)
  - Myocardial infarction [Recovered/Resolved]
  - Overdose [Recovering/Resolving]
  - Tobacco poisoning [Recovering/Resolving]
  - Heart rate increased [Recovering/Resolving]
  - Chest pain [Recovered/Resolved]
  - Palpitations [Recovering/Resolving]
  - Hypertension [Recovered/Resolved]
  - Nausea [Recovering/Resolving]
  - Dizziness [Recovering/Resolving]
  - Feeling abnormal [Recovering/Resolving]
  - Malaise [Recovering/Resolving]
